FAERS Safety Report 9278260 (Version 1)
Quarter: 2013Q2

REPORT INFORMATION
  Report Type: Spontaneous
  Country: SE (occurrence: SE)
  Receive Date: 20130508
  Receipt Date: 20130508
  Transmission Date: 20140414
  Serious: Yes (Hospitalization)
  Sender: FDA-Public Use
  Company Number: SE-NOVOPROD-377002

PATIENT
  Age: 61 Year
  Sex: Female

DRUGS (12)
  1. VICTOZA [Suspect]
     Indication: DIABETES MELLITUS
     Dosage: UNK
     Route: 065
     Dates: start: 201210, end: 201211
  2. NOVORAPID FLEXPEN [Concomitant]
     Dosage: UNK
     Route: 065
  3. ENALAPRIL [Concomitant]
     Dosage: UNK
     Route: 065
  4. SIMVASTATIN [Concomitant]
     Dosage: UNK
     Route: 065
  5. CITALOPRAM [Concomitant]
     Dosage: UNK
     Route: 065
  6. PANODIL [Concomitant]
     Dosage: 500 MG
     Route: 065
  7. BENOVATE [Concomitant]
     Dosage: 1 MG
     Route: 065
  8. HERACILLIN                         /00239102/ [Concomitant]
     Dosage: 500 MG
     Route: 065
  9. FURIX [Concomitant]
     Dosage: 40 MG
     Route: 065
  10. PLENDIL [Concomitant]
     Dosage: 10 MG
     Route: 065
  11. LANTUS [Concomitant]
     Dosage: UNK
     Route: 065
  12. ETALPHA [Concomitant]
     Dosage: 5 ?G
     Route: 065

REACTIONS (6)
  - Vertigo [Unknown]
  - Blood creatinine increased [Unknown]
  - Nausea [Unknown]
  - Vomiting [Unknown]
  - Dehydration [Unknown]
  - Renal failure acute [Unknown]
